FAERS Safety Report 22053213 (Version 2)
Quarter: 2023Q1

REPORT INFORMATION
  Report Type: Report from Study
  Country: AR (occurrence: AR)
  Receive Date: 20230302
  Receipt Date: 20230331
  Transmission Date: 20230418
  Serious: Yes (Life-Threatening, Hospitalization, Other)
  Sender: FDA-Public Use
  Company Number: AR-002147023-NVSC2023AR047708

PATIENT
  Age: 79 Year
  Sex: Female

DRUGS (1)
  1. KISQALI [Suspect]
     Active Substance: RIBOCICLIB
     Indication: Breast cancer metastatic
     Dosage: 600 MG, QD
     Route: 048
     Dates: start: 20220822

REACTIONS (7)
  - General physical health deterioration [Unknown]
  - Dehydration [Unknown]
  - Weight decreased [Unknown]
  - Full blood count decreased [Unknown]
  - Asthenia [Unknown]
  - Immobilisation syndrome [Unknown]
  - Memory impairment [Unknown]

NARRATIVE: CASE EVENT DATE: 20221101
